FAERS Safety Report 12376371 (Version 3)
Quarter: 2016Q2

REPORT INFORMATION
  Report Type: Spontaneous
  Country: US (occurrence: US)
  Receive Date: 20160517
  Receipt Date: 20160615
  Transmission Date: 20160815
  Serious: Yes (Other)
  Sender: FDA-Public Use
  Company Number: US-PFIZER INC-2016257992

PATIENT
  Age: 81 Year
  Sex: Female
  Weight: 64 kg

DRUGS (7)
  1. AMLODIPINE [Concomitant]
     Active Substance: AMLODIPINE BESYLATE
     Indication: HYPERTENSION
     Dosage: 5 MG, 1X/DAY
     Dates: start: 20160414
  2. LISINOPRIL. [Concomitant]
     Active Substance: LISINOPRIL
     Indication: BLOOD PRESSURE ABNORMAL
     Dosage: 20 MG, 1X/DAY
  3. ADVIL [Suspect]
     Active Substance: IBUPROFEN
     Dosage: 2 A DAY OF ADVIL OF 200 MG
     Dates: end: 20160511
  4. CARVEDILOL. [Concomitant]
     Active Substance: CARVEDILOL
     Indication: HYPERTENSION
     Dosage: 12.5 MG, 2X/DAY
  5. CARVEDILOL. [Concomitant]
     Active Substance: CARVEDILOL
     Dosage: 25 MG, 2X/DAY
  6. ADVIL [Suspect]
     Active Substance: IBUPROFEN
     Dosage: UNK
  7. ADVIL [Suspect]
     Active Substance: IBUPROFEN
     Indication: PAIN
     Dosage: 200 MG,  2 IN THE AM AND 2 AT NIGHT
     Dates: start: 2015

REACTIONS (3)
  - Condition aggravated [Recovered/Resolved]
  - Blood pressure increased [Unknown]
  - Migraine [Recovered/Resolved]

NARRATIVE: CASE EVENT DATE: 2015
